FAERS Safety Report 5027839-6 (Version None)
Quarter: 2006Q2

REPORT INFORMATION
  Report Type: 
  Country: None (occurrence: None)
  Receive Date: 20060616
  Receipt Date: 20030610
  Transmission Date: 20061013
  Serious: Yes (Other)
  Sender: FDA-Public Use
  Company Number: 2003GB01486

PATIENT
  Age: 70 Year
  Sex: Male

DRUGS (5)
  1. ZESTRIL [Suspect]
     Indication: HYPERTENSION
     Route: 048
  2. DOXAZOSIN [Concomitant]
  3. DICLOFENAC POTASSIUM [Concomitant]
  4. PIROXICAM [Concomitant]
  5. TRAMADOL HCL [Concomitant]

REACTIONS (3)
  - ANGIONEUROTIC OEDEMA [None]
  - HYPOAESTHESIA [None]
  - SWELLING FACE [None]
